FAERS Safety Report 26188014 (Version 1)
Quarter: 2025Q4

REPORT INFORMATION
  Report Type: Spontaneous
  Country: AU (occurrence: AU)
  Receive Date: 20251222
  Receipt Date: 20251222
  Transmission Date: 20260117
  Serious: Yes (Other)
  Sender: EISAI
  Company Number: AU-Eisai-EC-2025-202243

PATIENT

DRUGS (2)
  1. LECANEMAB [Suspect]
     Active Substance: LECANEMAB
     Indication: Product used for unknown indication
     Dosage: DOSE UNKNOWN
     Route: 042
  2. DONANEMAB [Suspect]
     Active Substance: DONANEMAB
     Indication: Product used for unknown indication
     Dosage: DOSE AND FREQUENCY UNKNOWN

REACTIONS (1)
  - Cerebral microhaemorrhage [Unknown]

NARRATIVE: CASE EVENT DATE: 20251104
